FAERS Safety Report 5729244-3 (Version None)
Quarter: 2008Q2

REPORT INFORMATION
  Report Type: 
  Country: None (occurrence: None)
  Receive Date: 20080506
  Receipt Date: 20080424
  Transmission Date: 20081010
  Serious: Yes (Death, Life-Threatening)
  Sender: FDA-Public Use
  Company Number: AU-PFIZER INC-2008021825

PATIENT
  Sex: Female

DRUGS (8)
  1. SU-011,248 [Suspect]
     Dosage: DAILY DOSE:50MG-FREQ:15 DOSES
     Route: 048
     Dates: start: 20080218, end: 20080303
  2. I124-CG250 [Suspect]
     Dosage: DAILY DOSE:17.5MG-FREQ:3 DOSES
     Route: 042
     Dates: start: 20080211, end: 20080211
  3. CG250 [Suspect]
     Dosage: DAILY DOSE:17.5MG-FREQ:3 DOSES
     Route: 042
     Dates: start: 20080218, end: 20080303
  4. ATENOLOL [Concomitant]
     Dosage: DAILY DOSE:50MG-FREQ:MANE
     Route: 048
     Dates: start: 20040101, end: 20080304
  5. INDAPAMIDE [Concomitant]
     Dosage: DAILY DOSE:2.5MG-FREQ:MANE
     Route: 048
     Dates: start: 20040101, end: 20080304
  6. METFORMIN HCL [Concomitant]
     Dates: start: 20040101, end: 20080304
  7. SIMVASTATIN [Concomitant]
     Dosage: DAILY DOSE:40MG-FREQ:NOCTE
     Route: 048
     Dates: start: 20040101, end: 20080304
  8. SSKI [Concomitant]
     Route: 048
     Dates: start: 20080211, end: 20080221

REACTIONS (15)
  - ACUTE LEFT VENTRICULAR FAILURE [None]
  - ACUTE MYOCARDIAL INFARCTION [None]
  - BACK PAIN [None]
  - BLOOD CREATININE INCREASED [None]
  - CARDIOGENIC SHOCK [None]
  - DIABETIC MICROANGIOPATHY [None]
  - DRUG TOXICITY [None]
  - HEPATIC ISCHAEMIA [None]
  - HYPOCALCAEMIA [None]
  - HYPOKALAEMIA [None]
  - HYPOMAGNESAEMIA [None]
  - INSOMNIA [None]
  - LEFT VENTRICULAR HYPERTROPHY [None]
  - LIVER INJURY [None]
  - SEPSIS [None]
